FAERS Safety Report 6501837-5 (Version None)
Quarter: 2009Q4

REPORT INFORMATION
  Report Type: 
  Country: None (occurrence: None)
  Receive Date: 20091216
  Receipt Date: 20091209
  Transmission Date: 20100525
  Serious: Yes (Other)
  Sender: FDA-Public Use
  Company Number: JP-WYE-H12634009

PATIENT

DRUGS (1)
  1. ANCARON [Suspect]
     Dosage: DOSE UNKNOWN
     Route: 048

REACTIONS (1)
  - MYASTHENIA GRAVIS [None]
